FAERS Safety Report 13908227 (Version 1)
Quarter: 2017Q3

REPORT INFORMATION
  Report Type: Spontaneous
  Country: US (occurrence: US)
  Receive Date: 20170825
  Receipt Date: 20170825
  Transmission Date: 20171127
  Serious: No
  Sender: FDA-Public Use
  Company Number: US-TEIKOKU PHARMA USA-TPU2017-00498

PATIENT
  Sex: Female
  Weight: 65.83 kg

DRUGS (11)
  1. RITUXIMAB. [Concomitant]
     Active Substance: RITUXIMAB
     Indication: AUTOIMMUNE DISORDER
     Dates: start: 2012
  2. CALCIUM [Concomitant]
     Active Substance: CALCIUM
     Indication: OSTEOPENIA
  3. FISH OIL [Concomitant]
     Active Substance: FISH OIL
     Indication: OSTEOPENIA
  4. ESCITALOPRAM [Concomitant]
     Active Substance: ESCITALOPRAM OXALATE
     Indication: DEPRESSION
  5. ESCITALOPRAM [Concomitant]
     Active Substance: ESCITALOPRAM OXALATE
     Indication: PAIN
  6. PREDNISONE. [Concomitant]
     Active Substance: PREDNISONE
     Indication: VASCULITIS
  7. MEDICATION TO HELP PREVENT MIGRAINE HEADACHE [Concomitant]
  8. ASPIRIN. [Concomitant]
     Active Substance: ASPIRIN
     Indication: CARDIAC DISORDER
  9. LIDODERM [Suspect]
     Active Substance: LIDOCAINE
     Indication: SPINAL CORD INJURY
     Dosage: UP TO 3 PATCHES AS NEEDED, NOT EVERYDAY
     Dates: start: 2007
  10. LYCINE [Concomitant]
     Indication: HERPES VIRUS INFECTION
  11. LIDOCAINE. [Concomitant]
     Active Substance: LIDOCAINE
     Indication: PELVIC FLOOR DYSSYNERGIA
     Dosage: APPLIES INTRA VAGINALLY AND RECTALLY, AS NEEDED
     Route: 054

REACTIONS (1)
  - Herpes zoster [Unknown]
